FAERS Safety Report 5413503-8 (Version None)
Quarter: 2007Q3

REPORT INFORMATION
  Report Type: 
  Country: None (occurrence: None)
  Receive Date: 20070814
  Receipt Date: 20070802
  Transmission Date: 20080115
  Serious: Yes (Other)
  Sender: FDA-Public Use
  Company Number: NL-AMGEN-US229387

PATIENT
  Sex: Male

DRUGS (7)
  1. ENBREL [Suspect]
     Indication: ANKYLOSING SPONDYLITIS
     Dosage: LYOPHILISED: 25 MG 2 TIMES PER WEEK
     Route: 058
     Dates: start: 20050501, end: 20070501
  2. ENBREL [Suspect]
     Dosage: PRE-FILLED SYRINGE: 25 MG 2 TIMES PER WEEK
     Route: 058
     Dates: start: 20070501, end: 20070531
  3. ENBREL [Suspect]
     Dosage: LYOPHILISED: 25 MG 2 TIMES PER WEEK
     Route: 058
     Dates: start: 20070701
  4. PANTOPRAZOLE SODIUM [Concomitant]
     Indication: PROPHYLAXIS
  5. CALCICHEW-D3 [Concomitant]
     Indication: OSTEOPOROSIS
     Dosage: 500/400 IU 1 TIME PER DAY
  6. DICLOFENAC [Concomitant]
     Indication: ANKYLOSING SPONDYLITIS
     Dosage: 2 TO 3 TIMES PER WEEK 75 MG AS NECESSARY
     Route: 048
  7. ACTONEL [Concomitant]
     Indication: OSTEOPOROSIS

REACTIONS (3)
  - ECZEMA [None]
  - HYPERSENSITIVITY [None]
  - URTICARIA [None]
